FAERS Safety Report 20847116 (Version 1)
Quarter: 2022Q2

REPORT INFORMATION
  Report Type: Spontaneous
  Country: US (occurrence: US)
  Receive Date: 20220519
  Receipt Date: 20220519
  Transmission Date: 20220721
  Serious: No
  Sender: FDA-Public Use
  Company Number: US-Accord-233065

PATIENT
  Sex: Male
  Weight: 70.76 kg

DRUGS (2)
  1. QUETIAPINE [Suspect]
     Active Substance: QUETIAPINE
     Indication: Bipolar I disorder
     Dosage: AT BEDTIME
     Route: 048
     Dates: start: 202107
  2. DEPAKOTE ER [Concomitant]
     Active Substance: DIVALPROEX SODIUM
     Dosage: BEDTIME
     Route: 048

REACTIONS (7)
  - Vision blurred [Unknown]
  - Dysarthria [Unknown]
  - Mania [Unknown]
  - Swelling face [Recovered/Resolved]
  - Peripheral swelling [Recovered/Resolved]
  - Weight increased [Unknown]
  - Sleep disorder [Unknown]
